FAERS Safety Report 8444917-X (Version None)
Quarter: 2012Q2

REPORT INFORMATION
  Report Type: 
  Country: None (occurrence: None)
  Receive Date: 20120323
  Receipt Date: 20111008
  Transmission Date: 20120825
  Serious: Yes (Other)
  Sender: FDA-Public Use
  Company Number: 163-21880-11082160

PATIENT
  Sex: Male

DRUGS (23)
  1. LANTUS [Concomitant]
  2. XALATAN (LATANOPROST) (SOLUTION) [Concomitant]
  3. VELCADE [Concomitant]
  4. ALLEGRA [Concomitant]
  5. REVLIMID [Suspect]
     Indication: MULTIPLE MYELOMA
     Dosage: 25 MG, 1 IN 1 D, PO 10 MG, 1 IN 1 D, PO 10 MG, QOD, PO
     Route: 048
     Dates: start: 20100114, end: 20110718
  6. REVLIMID [Suspect]
     Indication: MULTIPLE MYELOMA
     Dosage: 25 MG, 1 IN 1 D, PO 10 MG, 1 IN 1 D, PO 10 MG, QOD, PO
     Route: 048
     Dates: start: 20090901
  7. REVLIMID [Suspect]
     Indication: MULTIPLE MYELOMA
     Dosage: 25 MG, 1 IN 1 D, PO 10 MG, 1 IN 1 D, PO 10 MG, QOD, PO
     Route: 048
     Dates: start: 20081101
  8. ALLOPURINOL [Concomitant]
  9. LOVASTATIN (LOVASTATIN) (TABLETS) [Concomitant]
  10. TIZANIDINE (TIZANIDINE) (TABLETS) [Concomitant]
  11. DIOVAN [Concomitant]
  12. ZEMPLAR (PARICALCITOL) (CAPSULES) [Concomitant]
  13. DECADRON [Concomitant]
  14. CHLORTHALID (CHLORTALIDONE) (TABLETS) [Concomitant]
  15. GEMFIBROZIL (GEMFIBROZIL) (TABLETS) [Concomitant]
  16. PERCOCET [Concomitant]
  17. NORVASC [Concomitant]
  18. ASPIRIN (ACETYLSALICYLIC ACID) (CHEWABLE TABLET) [Concomitant]
  19. LOPID [Concomitant]
  20. ZANTAC (RANITIDINE HYDROCHLORIDE) (TABLETS) [Concomitant]
  21. BENICAR [Concomitant]
  22. VOLTAREN (DICLOFENAC DIETHYLAMINE) (UNKNOWN) [Concomitant]
  23. VITAMIN B12 (CYANOCOBALAMIN) (TABLETS) [Concomitant]

REACTIONS (2)
  - ANAEMIA [None]
  - LEUKOPENIA [None]
